FAERS Safety Report 6091681-8 (Version None)
Quarter: 2009Q1

REPORT INFORMATION
  Report Type: 
  Country: None (occurrence: None)
  Receive Date: 20090225
  Receipt Date: 20080404
  Transmission Date: 20090719
  Serious: No
  Sender: FDA-Public Use
  Company Number: A0719399A

PATIENT
  Sex: Female

DRUGS (8)
  1. VALTREX [Suspect]
     Dosage: 500MG TWICE PER DAY
     Route: 048
  2. DIAVAN [Concomitant]
  3. CRESTOR [Concomitant]
  4. TRICOR [Concomitant]
  5. NORVASC [Concomitant]
  6. MAGNESIUM SULFATE [Concomitant]
  7. ARTHRITIS MEDICATION [Concomitant]
  8. CALCIUM [Concomitant]

REACTIONS (2)
  - LIP DISORDER [None]
  - PARAESTHESIA ORAL [None]
